FAERS Safety Report 20920295 (Version 1)
Quarter: 2022Q2

REPORT INFORMATION
  Report Type: Spontaneous
  Country: US (occurrence: None)
  Receive Date: 20220604
  Receipt Date: 20220604
  Transmission Date: 20220721
  Serious: No
  Sender: FDA-Public Use
  Company Number: None

PATIENT
  Age: 71 Year
  Sex: Female
  Weight: 87.75 kg

DRUGS (1)
  1. ROSUVASTATIN [Suspect]
     Active Substance: ROSUVASTATIN
     Indication: Blood cholesterol increased
     Dates: start: 20220112, end: 20220506

REACTIONS (7)
  - Insomnia [None]
  - Arthralgia [None]
  - Malaise [None]
  - Myalgia [None]
  - Therapy interrupted [None]
  - Skin lesion [None]
  - Oral disorder [None]

NARRATIVE: CASE EVENT DATE: 20220212
